FAERS Safety Report 10172845 (Version 2)
Quarter: 2014Q2

REPORT INFORMATION
  Report Type: Not Available
  Country: US (occurrence: US)
  Receive Date: 20140515
  Receipt Date: 20140515
  Transmission Date: 20141212
  Serious: No
  Sender: FDA-Public Use
  Company Number: US-LUPIN PHARMACEUTICALS INC.-E2B_00001778

PATIENT
  Age: 24 Year
  Sex: Female
  Weight: 64.47 kg

DRUGS (1)
  1. LEVONORGESTREL AND ETHINYL ESTRADIOL TABLETS USP 0.15 MG/0.03 MG [Suspect]
     Indication: MENSTRUAL CYCLE MANAGEMENT
     Dates: start: 20140223

REACTIONS (1)
  - Metrorrhagia [Not Recovered/Not Resolved]
